FAERS Safety Report 9173214 (Version 4)
Quarter: 2014Q2

REPORT INFORMATION
  Report Type: Spontaneous
  Country: DK (occurrence: DK)
  Receive Date: 20130320
  Receipt Date: 20140519
  Transmission Date: 20141212
  Serious: Yes (Hospitalization)
  Sender: FDA-Public Use
  Company Number: DK-JNJFOC-20130304423

PATIENT
  Age: 31 Year
  Sex: Female
  Weight: 64 kg

DRUGS (4)
  1. REMICADE [Suspect]
     Indication: RHEUMATOID ARTHRITIS
     Route: 042
     Dates: start: 20110429, end: 20111208
  2. METHOTREXAAT SANDOZ [Suspect]
     Indication: RHEUMATOID ARTHRITIS
     Dosage: 0-20 MG
     Route: 065
     Dates: start: 2009, end: 201306
  3. PREDNISOLON [Concomitant]
     Dosage: 0-10 MG
     Route: 065
     Dates: start: 2009, end: 201207
  4. CIPRAMIL [Concomitant]
     Route: 048

REACTIONS (3)
  - Pneumothorax [Recovered/Resolved]
  - Drug-induced liver injury [Unknown]
  - Eating disorder [Unknown]
